FAERS Safety Report 8326057-3 (Version None)
Quarter: 2012Q2

REPORT INFORMATION
  Report Type: 
  Country: None (occurrence: None)
  Receive Date: 20120501
  Receipt Date: 20120329
  Transmission Date: 20120825
  Serious: Yes (Other)
  Sender: FDA-Public Use
  Company Number: US-GLAXOSMITHKLINE-A0971569A

PATIENT
  Age: 71 Year
  Sex: Female
  Weight: 70.9 kg

DRUGS (1)
  1. PROMACTA [Suspect]
     Indication: PRODUCT USED FOR UNKNOWN INDICATION
     Dosage: 75MG PER DAY
     Route: 048
     Dates: start: 20120229

REACTIONS (3)
  - LEUKOCYTOSIS [None]
  - RASH PRURITIC [None]
  - OEDEMA [None]
